FAERS Safety Report 7415433-9 (Version None)
Quarter: 2011Q2

REPORT INFORMATION
  Report Type: 
  Country: None (occurrence: None)
  Receive Date: 20110414
  Receipt Date: 20110407
  Transmission Date: 20111010
  Serious: Yes (Death, Life-Threatening, Hospitalization, Other)
  Sender: FDA-Public Use
  Company Number: CA-GILEAD-2009-0020646

PATIENT
  Sex: Female
  Weight: 71 kg

DRUGS (2)
  1. CEFTIN [Concomitant]
     Dates: start: 20081203, end: 20081209
  2. ATRIPLA [Suspect]
     Indication: HIV INFECTION
     Route: 048
     Dates: start: 20080912, end: 20090202

REACTIONS (1)
  - ACUTE HEPATIC FAILURE [None]
